FAERS Safety Report 23820142 (Version 1)
Quarter: 2024Q2

REPORT INFORMATION
  Report Type: Spontaneous
  Country: US (occurrence: US)
  Receive Date: 20240506
  Receipt Date: 20240506
  Transmission Date: 20240716
  Serious: Yes (Other)
  Sender: FDA-Public Use
  Company Number: US-AUROBINDO-AUR-APL-2024-020414

PATIENT
  Age: 20 Year
  Sex: Male

DRUGS (28)
  1. CARBOPLATIN [Suspect]
     Active Substance: CARBOPLATIN
     Indication: Adrenocortical carcinoma
     Dosage: UNK
     Route: 065
  2. CARBOPLATIN [Suspect]
     Active Substance: CARBOPLATIN
     Indication: Metastases to lung
  3. CARBOPLATIN [Suspect]
     Active Substance: CARBOPLATIN
     Indication: Metastases to liver
  4. CARBOPLATIN [Suspect]
     Active Substance: CARBOPLATIN
     Indication: Chemotherapy
  5. ETOPOSIDE [Suspect]
     Active Substance: ETOPOSIDE
     Indication: Adrenocortical carcinoma
     Dosage: UNK
     Route: 065
  6. ETOPOSIDE [Suspect]
     Active Substance: ETOPOSIDE
     Indication: Metastases to lung
  7. ETOPOSIDE [Suspect]
     Active Substance: ETOPOSIDE
     Indication: Metastases to liver
  8. ETOPOSIDE [Suspect]
     Active Substance: ETOPOSIDE
     Indication: Chemotherapy
  9. MITOTANE [Suspect]
     Active Substance: MITOTANE
     Indication: Adrenocortical carcinoma
     Dosage: UNK
     Route: 065
  10. MITOTANE [Suspect]
     Active Substance: MITOTANE
     Indication: Metastases to lung
  11. MITOTANE [Suspect]
     Active Substance: MITOTANE
     Indication: Metastases to liver
  12. ETOMIDATE [Concomitant]
     Active Substance: ETOMIDATE
     Indication: Adrenocortical carcinoma
     Dosage: UNK (IN THE ICU)
     Route: 041
  13. ETOMIDATE [Concomitant]
     Active Substance: ETOMIDATE
     Indication: Metastases to lung
  14. ETOMIDATE [Concomitant]
     Active Substance: ETOMIDATE
     Indication: Metastases to liver
  15. DEXAMETHASONE [Concomitant]
     Active Substance: DEXAMETHASONE
     Indication: Adrenocortical carcinoma
     Dosage: UNK (IN THE ICU)
     Route: 042
  16. DEXAMETHASONE [Concomitant]
     Active Substance: DEXAMETHASONE
     Indication: Metastases to lung
  17. DEXAMETHASONE [Concomitant]
     Active Substance: DEXAMETHASONE
     Indication: Metastases to liver
  18. FUROSEMIDE [Concomitant]
     Active Substance: FUROSEMIDE
     Indication: Adrenocortical carcinoma
     Dosage: UNK (ON DISCHARGE) PO
     Route: 048
  19. FUROSEMIDE [Concomitant]
     Active Substance: FUROSEMIDE
     Indication: Metastases to lung
  20. FUROSEMIDE [Concomitant]
     Active Substance: FUROSEMIDE
     Indication: Metastases to liver
  21. DOXAZOSIN [Concomitant]
     Active Substance: DOXAZOSIN MESYLATE
     Indication: Adrenocortical carcinoma
     Dosage: UNK (ON DISCHARGE)
     Route: 065
  22. DOXAZOSIN [Concomitant]
     Active Substance: DOXAZOSIN MESYLATE
     Indication: Metastases to lung
  23. DOXAZOSIN [Concomitant]
     Active Substance: DOXAZOSIN MESYLATE
     Indication: Metastases to liver
  24. KETOCONAZOLE [Concomitant]
     Active Substance: KETOCONAZOLE
     Indication: Adrenocortical carcinoma
     Dosage: UNK (ON DISCHARGE)
     Route: 065
  25. KETOCONAZOLE [Concomitant]
     Active Substance: KETOCONAZOLE
     Indication: Metastases to lung
  26. KETOCONAZOLE [Concomitant]
     Active Substance: KETOCONAZOLE
     Indication: Metastases to liver
  27. COTRIMOXAZOLE [Concomitant]
     Active Substance: SULFAMETHOXAZOLE\TRIMETHOPRIM
     Indication: Antifungal prophylaxis
     Dosage: UNK
     Route: 065
  28. HYDROCORTISONE [Concomitant]
     Active Substance: HYDROCORTISONE
     Indication: Adrenal insufficiency
     Dosage: UNK (PO)
     Route: 048

REACTIONS (1)
  - Drug ineffective [Unknown]
